FAERS Safety Report 20058605 (Version 1)
Quarter: 2021Q4

REPORT INFORMATION
  Report Type: Spontaneous
  Country: US (occurrence: US)
  Receive Date: 20211111
  Receipt Date: 20211111
  Transmission Date: 20220303
  Serious: No
  Sender: FDA-Public Use
  Company Number: US-SA-SAC20211109000837

PATIENT
  Age: 52 Year
  Sex: Female

DRUGS (8)
  1. DUPIXENT [Suspect]
     Active Substance: DUPILUMAB
     Indication: Dermatitis atopic
     Dosage: 300 MG, QOW
     Route: 058
     Dates: start: 20210909
  2. EVENING PRIMROSE OIL [OENOTHERA BIENNIS OIL] [Concomitant]
  3. BLACK COHOSH [Concomitant]
     Active Substance: BLACK COHOSH
  4. HYDROXYZINE HYDROCHLORIDE [Concomitant]
     Active Substance: HYDROXYZINE HYDROCHLORIDE
  5. MONTELUKAST SODIUM [Concomitant]
     Active Substance: MONTELUKAST SODIUM
  6. ADVIL [Concomitant]
     Active Substance: IBUPROFEN
  7. FLAXSEED OIL [LINUM USITATISSIMUM OIL] [Concomitant]
  8. BETAMETHASONE DIPROPIONATE, AUGMENTED [Concomitant]

REACTIONS (1)
  - Headache [Unknown]

NARRATIVE: CASE EVENT DATE: 20211101
